FAERS Safety Report 7393772-8 (Version None)
Quarter: 2011Q1

REPORT INFORMATION
  Report Type: 
  Country: None (occurrence: None)
  Receive Date: 20110330
  Receipt Date: 20110330
  Transmission Date: 20110831
  Serious: Yes (Life-Threatening, Disabling, Other)
  Sender: FDA-Public Use
  Company Number: None

PATIENT
  Age: 48 Year
  Sex: Male
  Weight: 108.8633 kg

DRUGS (1)
  1. TIZANNIDINE (ZARAFLEX) [Suspect]
     Indication: ANXIETY
     Dosage: 1 TAB 1 X AT NITE 4 MG 1 DAILY PO
     Route: 048
     Dates: start: 20110326, end: 20110326

REACTIONS (3)
  - DRY MOUTH [None]
  - MOUTH HAEMORRHAGE [None]
  - BURNING SENSATION [None]
